FAERS Safety Report 8673574 (Version 2)
Quarter: 2013Q1

REPORT INFORMATION
  Report Type: Spontaneous
  Country: DK (occurrence: DK)
  Receive Date: 20120719
  Receipt Date: 20130318
  Transmission Date: 20140127
  Serious: Yes (Disabling, Congenital Anomaly)
  Sender: FDA-Public Use
  Company Number: DK-PFIZER INC-2012167268

PATIENT
  Sex: Female

DRUGS (1)
  1. CYTOTEC [Suspect]
     Indication: INDUCED LABOUR
     Dosage: 25 UG, UNK
     Route: 064
     Dates: start: 20090708, end: 20090708

REACTIONS (3)
  - Maternal exposure timing unspecified [Recovered/Resolved]
  - Neonatal asphyxia [Recovered/Resolved with Sequelae]
  - Muscle spasticity [Not Recovered/Not Resolved]
